FAERS Safety Report 8585813-7 (Version None)
Quarter: 2012Q3

REPORT INFORMATION
  Report Type: 
  Country: None (occurrence: None)
  Receive Date: 20120810
  Receipt Date: 20120803
  Transmission Date: 20120928
  Serious: Yes (Hospitalization)
  Sender: FDA-Public Use
  Company Number: ES-ELI_LILLY_AND_COMPANY-ES201208001893

PATIENT
  Sex: Female
  Weight: 49.7 kg

DRUGS (10)
  1. LYRICA [Concomitant]
     Indication: PARAESTHESIA
     Dosage: 75 MG, BID
     Route: 048
  2. VISCOFRESH [Concomitant]
     Indication: DRY EYE
     Dosage: UNK, PRN
     Route: 047
  3. RILAST [Concomitant]
     Indication: BRONCHITIS CHRONIC
     Dosage: UNK UNK, BID
     Route: 048
  4. RESINCOLESTIRAMINA [Concomitant]
     Indication: HIATUS HERNIA
     Dosage: UNK UNK, TID
     Route: 048
  5. TRAMADOL HCL [Concomitant]
     Indication: PARAESTHESIA
     Dosage: 1 DF, BID
     Route: 048
  6. CALCIUM CARBONATE [Concomitant]
     Indication: OSTEOPOROSIS
     Dosage: UNK UNK, QD
     Route: 048
  7. SPIRIVA [Concomitant]
     Indication: BRONCHITIS CHRONIC
     Dosage: UNK UNK, BID
     Route: 065
  8. FORTEO [Suspect]
     Indication: OSTEOPOROSIS
     Dosage: 20 UG, QD
     Route: 058
     Dates: start: 20120228
  9. ACETAMINOPHEN [Concomitant]
     Indication: PAIN
     Dosage: UNK UNK, UNKNOWN
     Route: 048
  10. ULTRA LEVURA                       /00243701/ [Concomitant]
     Indication: HIATUS HERNIA
     Dosage: UNK, TID
     Route: 048

REACTIONS (4)
  - JOINT DISLOCATION [None]
  - PELVIC FRACTURE [None]
  - CLAVICLE FRACTURE [None]
  - FALL [None]
